FAERS Safety Report 9782442 (Version 1)
Quarter: 2013Q4

REPORT INFORMATION
  Report Type: Spontaneous
  Country: US (occurrence: US)
  Receive Date: 20131226
  Receipt Date: 20131226
  Transmission Date: 20140711
  Serious: Yes (Death, Hospitalization, Other)
  Sender: FDA-Public Use
  Company Number: US-JNJFOC-20131214195

PATIENT
  Sex: Female

DRUGS (3)
  1. TYLENOL ANALGESIC UNKNOWN [Suspect]
     Route: 048
  2. TYLENOL ANALGESIC UNKNOWN [Suspect]
     Indication: PAIN
     Route: 048
  3. TYLENOL 3 [Suspect]
     Indication: PAIN
     Route: 065

REACTIONS (2)
  - Hepatic failure [Fatal]
  - Renal failure [Fatal]
